FAERS Safety Report 17282127 (Version 1)
Quarter: 2020Q1

REPORT INFORMATION
  Report Type: Spontaneous
  Country: US (occurrence: US)
  Receive Date: 20200116
  Receipt Date: 20200116
  Transmission Date: 20200409
  Serious: Yes (Hospitalization)
  Sender: FDA-Public Use
  Company Number: None

PATIENT
  Age: 61 Year
  Sex: Female

DRUGS (9)
  1. SIMVASTATIN. [Concomitant]
     Active Substance: SIMVASTATIN
  2. EMGALITY [Concomitant]
     Active Substance: GALCANEZUMAB-GNLM
  3. METHOTREXATE. [Concomitant]
     Active Substance: METHOTREXATE
  4. BISOPROL [Concomitant]
     Active Substance: BISOPROLOL FUMARATE
  5. NEO/POLY/HC [Concomitant]
     Active Substance: HYDROCORTISONE\NEOMYCIN\POLYMYXIN B SULFATE
  6. HUMIRA [Suspect]
     Active Substance: ADALIMUMAB
     Indication: RHEUMATOID ARTHRITIS
     Dosage: ?          OTHER FREQUENCY:Q 2 WEEKS;?
     Route: 058
     Dates: start: 20180323
  7. FOLIC ACID. [Concomitant]
     Active Substance: FOLIC ACID
  8. GUANFACINE. [Concomitant]
     Active Substance: GUANFACINE
  9. SULFASALAZINE DELAYED-RELEASE [Concomitant]
     Active Substance: SULFASALAZINE

REACTIONS (1)
  - Lupus-like syndrome [None]
